FAERS Safety Report 15893155 (Version 1)
Quarter: 2019Q1

REPORT INFORMATION
  Report Type: Report from Study
  Country: US (occurrence: US)
  Receive Date: 20190130
  Receipt Date: 20190130
  Transmission Date: 20190417
  Serious: No
  Sender: FDA-Public Use
  Company Number: US-EXELIXIS-CABO-18016565

PATIENT
  Sex: Male

DRUGS (3)
  1. CABOMETYX [Suspect]
     Active Substance: CABOZANTINIB S-MALATE
     Dosage: 20 MG, QD
     Route: 048
  2. CABOMETYX [Suspect]
     Active Substance: CABOZANTINIB S-MALATE
     Dosage: 40 MG, QD
     Route: 048
  3. CABOMETYX [Suspect]
     Active Substance: CABOZANTINIB S-MALATE
     Indication: RENAL CANCER
     Dosage: 60 MG, QD
     Route: 048
     Dates: start: 20180308

REACTIONS (19)
  - Back pain [Unknown]
  - Dry skin [Unknown]
  - Head injury [Unknown]
  - Fall [Unknown]
  - Plantar fasciitis [Recovered/Resolved]
  - Diarrhoea [Unknown]
  - Skin abrasion [Unknown]
  - Limb injury [Unknown]
  - Oedema peripheral [Recovering/Resolving]
  - Hypertension [Unknown]
  - Photophobia [Unknown]
  - Headache [Unknown]
  - Impaired healing [Unknown]
  - Heart rate irregular [Unknown]
  - Vitamin B12 deficiency [Unknown]
  - Weight increased [Unknown]
  - Alopecia [Unknown]
  - Skin exfoliation [Recovered/Resolved]
  - Heart rate increased [Unknown]
